FAERS Safety Report 7792923-0 (Version None)
Quarter: 2011Q4

REPORT INFORMATION
  Report Type: 
  Country: None (occurrence: None)
  Receive Date: 20111003
  Receipt Date: 20110927
  Transmission Date: 20120403
  Serious: Yes (Death, Hospitalization)
  Sender: FDA-Public Use
  Company Number: KR-BRISTOL-MYERS SQUIBB COMPANY-16100323

PATIENT
  Age: 78 Year
  Sex: Female

DRUGS (9)
  1. TRAMADOL HYDROCHLORIDE/ACETAMINOPHEN [Concomitant]
     Indication: PAIN
     Dosage: DOLTRAMACET
     Dates: start: 20091021, end: 20100207
  2. URSA [Concomitant]
     Indication: HEPATIC ENZYME INCREASED
     Dates: start: 20091021, end: 20100207
  3. FOSAMAX [Concomitant]
     Indication: OSTEOPOROSIS
     Dates: start: 20091021, end: 20100207
  4. MAGNESIUM OXIDE [Concomitant]
     Indication: CONSTIPATION
     Dates: start: 20091021, end: 20100207
  5. FLUOROURACIL [Concomitant]
     Indication: CHEMOTHERAPY
     Dates: start: 20091205, end: 20100128
  6. MACPERAN [Concomitant]
     Indication: NAUSEA
     Dates: start: 20091021, end: 20100207
  7. PANTOPRAZOLE SODIUM [Concomitant]
     Indication: GASTRITIS
     Dates: start: 20091021, end: 20100207
  8. CAMPTOSAR [Concomitant]
     Indication: CHEMOTHERAPY
     Dates: start: 20091205, end: 20100127
  9. ERBITUX [Suspect]
     Dosage: INF:4 LAST DOSE:27JAN2010
     Dates: start: 20091205, end: 20100127

REACTIONS (1)
  - INFECTION [None]
